FAERS Safety Report 7772586-0 (Version None)
Quarter: 2011Q3

REPORT INFORMATION
  Report Type: 
  Country: None (occurrence: None)
  Receive Date: 20110922
  Receipt Date: 20110119
  Transmission Date: 20111222
  Serious: No
  Sender: FDA-Public Use
  Company Number: US-ASTRAZENECA-2011SE03542

PATIENT
  Age: 43 Year
  Sex: Male
  Weight: 113.4 kg

DRUGS (4)
  1. COUMADIN [Concomitant]
     Dates: start: 20070101
  2. SEROQUEL XR [Suspect]
     Indication: DEPRESSION
     Route: 048
     Dates: start: 20101201, end: 20110101
  3. CELEXA [Concomitant]
     Indication: DEPRESSION
  4. SEROQUEL XR [Suspect]
     Route: 048
     Dates: start: 20110101

REACTIONS (10)
  - DYSPHAGIA [None]
  - FATIGUE [None]
  - CONFUSIONAL STATE [None]
  - THIRST [None]
  - SLEEP DISORDER [None]
  - BLOOD GLUCOSE INCREASED [None]
  - POLLAKIURIA [None]
  - NIGHT SWEATS [None]
  - DYSKINESIA [None]
  - VISION BLURRED [None]
